FAERS Safety Report 6092190-2 (Version None)
Quarter: 2009Q1

REPORT INFORMATION
  Report Type: 
  Country: None (occurrence: None)
  Receive Date: 20090219
  Receipt Date: 20081121
  Transmission Date: 20090719
  Serious: No
  Sender: FDA-Public Use
  Company Number: WAES 0810USA00569

PATIENT
  Age: 57 Year
  Sex: Female
  Weight: 84.369 kg

DRUGS (6)
  1. JANUVIA [Suspect]
     Indication: TYPE 2 DIABETES MELLITUS
     Dosage: 100 MG/DAILY/PO ; 50 MG/DAILY/PO
     Route: 048
     Dates: start: 20080509, end: 20080514
  2. DIOVAN [Concomitant]
  3. WELCHOL [Concomitant]
  4. ZETIA [Concomitant]
  5. GLYBURIDE [Concomitant]
  6. METFORMIN HCL [Concomitant]

REACTIONS (3)
  - GINGIVAL PAIN [None]
  - HEADACHE [None]
  - PARAESTHESIA ORAL [None]
